FAERS Safety Report 6711183-2 (Version None)
Quarter: 2010Q2

REPORT INFORMATION
  Report Type: 
  Country: None (occurrence: None)
  Receive Date: 20100504
  Receipt Date: 20100504
  Transmission Date: 20101027
  Serious: No
  Sender: FDA-Public Use
  Company Number: None

PATIENT
  Age: 3 Year
  Sex: Male
  Weight: 23.1334 kg

DRUGS (1)
  1. CHILDREN'S MOTRIN [Suspect]
     Indication: PYREXIA
     Dosage: 2TSP 6-8HRS
     Dates: start: 20100430, end: 20100502

REACTIONS (3)
  - PRODUCT QUALITY ISSUE [None]
  - RASH [None]
  - SWELLING [None]
